FAERS Safety Report 20187232 (Version 1)
Quarter: 2021Q4

REPORT INFORMATION
  Report Type: Spontaneous
  Country: US (occurrence: None)
  Receive Date: 20211214
  Receipt Date: 20211214
  Transmission Date: 20220304
  Serious: Yes (Other)
  Sender: FDA-Public Use
  Company Number: None

PATIENT
  Age: 56 Year
  Sex: Male
  Weight: 75.15 kg

DRUGS (1)
  1. REGEN-COV [Suspect]
     Active Substance: CASIRIVIMAB\IMDEVIMAB
     Indication: SARS-CoV-2 test positive
     Route: 042
     Dates: start: 20211214, end: 20211214

REACTIONS (5)
  - Infusion related reaction [None]
  - Blood pressure decreased [None]
  - Loss of consciousness [None]
  - Seizure [None]
  - Refusal of treatment by patient [None]

NARRATIVE: CASE EVENT DATE: 20211214
